FAERS Safety Report 25045796 (Version 2)
Quarter: 2025Q2

REPORT INFORMATION
  Report Type: Spontaneous
  Country: JP (occurrence: JP)
  Receive Date: 20250306
  Receipt Date: 20250403
  Transmission Date: 20250717
  Serious: Yes (Hospitalization)
  Sender: ROCHE
  Company Number: None

PATIENT
  Age: 75 Year
  Sex: Male

DRUGS (9)
  1. MYCOPHENOLATE MOFETIL [Suspect]
     Active Substance: MYCOPHENOLATE MOFETIL
     Indication: Prophylaxis against transplant rejection
     Route: 065
  2. CYCLOSPORINE [Suspect]
     Active Substance: CYCLOSPORINE
     Indication: Prophylaxis against transplant rejection
     Route: 065
  3. CYCLOSPORINE [Suspect]
     Active Substance: CYCLOSPORINE
     Route: 065
  4. EPIRUBICIN [Concomitant]
     Active Substance: EPIRUBICIN
     Route: 043
  5. GEMCITABINE [Concomitant]
     Active Substance: GEMCITABINE
  6. GEMCITABINE [Concomitant]
     Active Substance: GEMCITABINE
  7. GEMCITABINE [Concomitant]
     Active Substance: GEMCITABINE
  8. CARBOPLATIN [Concomitant]
     Active Substance: CARBOPLATIN
  9. PEMBROLIZUMAB [Concomitant]
     Active Substance: PEMBROLIZUMAB

REACTIONS (3)
  - Transitional cell carcinoma [Unknown]
  - Ureteric cancer [Unknown]
  - Metastases to lymph nodes [Unknown]
